FAERS Safety Report 13620249 (Version 1)
Quarter: 2017Q2

REPORT INFORMATION
  Report Type: Spontaneous
  Country: CA (occurrence: US)
  Receive Date: 20170607
  Receipt Date: 20170607
  Transmission Date: 20170830
  Serious: Yes (Hospitalization)
  Sender: FDA-Public Use
  Company Number: None

PATIENT
  Age: 43 Year
  Sex: Male
  Weight: 90.2 kg

DRUGS (1)
  1. INTRON A [Suspect]
     Active Substance: INTERFERON ALFA-2B
     Dosage: TOTAL DOSE ADMINISTERED - 630 MILLION IU
     Dates: end: 20140228

REACTIONS (3)
  - Tri-iodothyronine free decreased [None]
  - Blood thyroid stimulating hormone increased [None]
  - Thyroxine free increased [None]

NARRATIVE: CASE EVENT DATE: 20140303
